FAERS Safety Report 11201175 (Version 1)
Quarter: 2015Q2

REPORT INFORMATION
  Report Type: Spontaneous
  Country: US (occurrence: US)
  Receive Date: 20150619
  Receipt Date: 20150619
  Transmission Date: 20150821
  Serious: No
  Sender: FDA-Public Use
  Company Number: US-ASTRAZENECA-2015SE56620

PATIENT
  Age: 58 Year
  Sex: Female
  Weight: 81.6 kg

DRUGS (4)
  1. XANAX [Concomitant]
     Active Substance: ALPRAZOLAM
     Indication: NERVOUSNESS
     Route: 065
  2. SEROQUEL [Suspect]
     Active Substance: QUETIAPINE FUMARATE
     Indication: SLEEP DISORDER
     Dosage: AT NIGHT
     Route: 048
     Dates: start: 20150606
  3. ANTIPSYCHOTIC [Concomitant]
     Active Substance: UNSPECIFIED INGREDIENT
     Route: 065
  4. SEROQUEL [Suspect]
     Active Substance: QUETIAPINE FUMARATE
     Indication: SLEEP DISORDER
     Dosage: AT NIGHT
     Route: 048
     Dates: start: 20150606

REACTIONS (6)
  - Feeling abnormal [Unknown]
  - Dizziness [Unknown]
  - Dysstasia [Unknown]
  - Somnolence [Unknown]
  - Intentional product misuse [Unknown]
  - Weight increased [Unknown]

NARRATIVE: CASE EVENT DATE: 20150606
